FAERS Safety Report 11766749 (Version 1)
Quarter: 2015Q4

REPORT INFORMATION
  Report Type: Spontaneous
  Country: CH (occurrence: CH)
  Receive Date: 20151123
  Receipt Date: 20151123
  Transmission Date: 20160304
  Serious: Yes (Hospitalization)
  Sender: FDA-Public Use
  Company Number: CH-TEVA-609691ISR

PATIENT
  Age: 44 Year
  Sex: Male

DRUGS (7)
  1. CISPLATINO-TEVA [Suspect]
     Active Substance: CISPLATIN
     Route: 041
     Dates: start: 20140510, end: 201406
  2. CIPRALEX MELTZ [Concomitant]
     Active Substance: ESCITALOPRAM OXALATE
     Dosage: 10 MILLIGRAM DAILY;
     Route: 065
  3. PANTOZOL [Concomitant]
     Active Substance: PANTOPRAZOLE SODIUM
     Dosage: 40 MILLIGRAM DAILY;
     Route: 065
  4. VINBLASTINE-TEVA [Suspect]
     Active Substance: VINBLASTINE
     Route: 041
     Dates: start: 20140511, end: 201406
  5. HYDROCORTONE [Concomitant]
     Active Substance: HYDROCORTISONE
     Dosage: 30 MILLIGRAM DAILY;
     Route: 065
  6. DACIN [Suspect]
     Active Substance: DACARBAZINE
     Route: 041
     Dates: start: 20140510, end: 2014
  7. DACIN [Suspect]
     Active Substance: DACARBAZINE
     Dosage: ON 05-JUN-2015, THE PATIENT RECEIVED THE DRUG AT A DOSAGE OF 1000 MG/M2 ONCE PER 3 WEEKS
     Route: 041
     Dates: start: 2014, end: 2014

REACTIONS (5)
  - Abdominal pain [Recovered/Resolved]
  - Pancreatitis acute [Recovering/Resolving]
  - Amylase increased [Recovered/Resolved]
  - Protein C increased [Recovering/Resolving]
  - Lipase increased [Recovering/Resolving]

NARRATIVE: CASE EVENT DATE: 20140610
